FAERS Safety Report 11598174 (Version 5)
Quarter: 2016Q1

REPORT INFORMATION
  Report Type: Spontaneous
  Country: US (occurrence: US)
  Receive Date: 20151006
  Receipt Date: 20160129
  Transmission Date: 20160525
  Serious: Yes (Other)
  Sender: FDA-Public Use
  Company Number: US-PFIZER INC-2015322149

PATIENT
  Age: 51 Year
  Sex: Female

DRUGS (3)
  1. ADVIL [Suspect]
     Active Substance: IBUPROFEN
     Indication: ARTHRITIS
     Dosage: 1 DF, DAILY (AS DIRECTED)
     Route: 048
  2. ADVIL [Suspect]
     Active Substance: IBUPROFEN
     Indication: HEADACHE
     Dosage: 200 MG, ONE OR TWO PER DAY
     Route: 048
     Dates: start: 20150515, end: 201509
  3. ADVIL [Suspect]
     Active Substance: IBUPROFEN
     Dosage: 1 DF, DAILY

REACTIONS (12)
  - Gastric disorder [Unknown]
  - Hyperchlorhydria [Unknown]
  - Nausea [Unknown]
  - Abdominal pain upper [Unknown]
  - Hepatic pain [Unknown]
  - Gastric ulcer [Unknown]
  - Dyspepsia [Unknown]
  - Gastrooesophageal reflux disease [Unknown]
  - Gastric pH decreased [Unknown]
  - Duodenitis [Unknown]
  - Abdominal discomfort [Unknown]
  - Gastritis [Unknown]

NARRATIVE: CASE EVENT DATE: 201509
